FAERS Safety Report 5312089-6 (Version None)
Quarter: 2007Q2

REPORT INFORMATION
  Report Type: 
  Country: None (occurrence: None)
  Receive Date: 20070430
  Receipt Date: 20060601
  Transmission Date: 20071010
  Serious: No
  Sender: FDA-Public Use
  Company Number: 2006UW10579

PATIENT
  Age: 73 Year
  Sex: Female
  Weight: 85.3 kg

DRUGS (5)
  1. NEXIUM [Suspect]
     Indication: OESOPHAGEAL ULCER
     Route: 048
  2. ACTONEL [Concomitant]
  3. TOPROL-XL [Concomitant]
  4. LASIX [Concomitant]
  5. PROZAC [Concomitant]

REACTIONS (3)
  - BREATH SOUNDS ABNORMAL [None]
  - NAUSEA [None]
  - WEIGHT DECREASED [None]
